FAERS Safety Report 7148107-2 (Version None)
Quarter: 2010Q4

REPORT INFORMATION
  Report Type: 
  Country: None (occurrence: None)
  Receive Date: 20101209
  Receipt Date: 20101206
  Transmission Date: 20110411
  Serious: No
  Sender: FDA-Public Use
  Company Number: US-PFIZER INC-2010165386

PATIENT
  Sex: Female
  Weight: 56.689 kg

DRUGS (8)
  1. DETROL LA [Suspect]
     Indication: HYPERTONIC BLADDER
     Dosage: 4 MG, 1X/DAY
  2. DETROL LA [Suspect]
     Dosage: 4 MG, 2X/DAY
     Route: 048
     Dates: start: 20101103
  3. CALCIUM [Concomitant]
     Indication: OSTEOPOROSIS
     Dosage: 600 MG, 2X/DAY
  4. VITAMIN D [Concomitant]
     Dosage: UNK
  5. ACTONEL [Concomitant]
     Dosage: UNK
     Route: 048
  6. NAMENDA [Concomitant]
     Dosage: 5 MG, UNK
  7. FOSAMAX [Concomitant]
     Dosage: UNK
     Route: 048
  8. ASCORBIC ACID [Concomitant]
     Dosage: 500 IU, UNK

REACTIONS (3)
  - CHAPPED LIPS [None]
  - DRUG INEFFECTIVE [None]
  - DRY MOUTH [None]
